FAERS Safety Report 10038386 (Version 1)
Quarter: 2014Q1

REPORT INFORMATION
  Report Type: Spontaneous
  Country: US (occurrence: None)
  Receive Date: 20140306
  Receipt Date: 20140306
  Transmission Date: 20141002
  Serious: Yes (Life-Threatening, Hospitalization)
  Sender: FDA-Public Use
  Company Number: 163-21880-13064287

PATIENT
  Age: 80 Year
  Sex: Male

DRUGS (9)
  1. REVLIMID [Suspect]
     Indication: PLASMA CELL MYELOMA
     Dosage: 25 MG , 21 IN 21 D, PO
     Route: 048
     Dates: start: 20130130
  2. AMLODIPINE BESYLATE (AMLODIPINE BESILATE) [Concomitant]
  3. AREDIA (PAMIDRONATE DISODIUM) [Concomitant]
  4. ASPIRIN LOW DOSE [Concomitant]
  5. BUPROPION HCL (BUPROPION HYDROCHLORIDE) [Concomitant]
  6. CIALIS [Concomitant]
  7. DEXAMETHASONE (DEXAMETHASONE) [Concomitant]
  8. LOSARTAN POTASSIUM (LOSARTAN POTASSIUM) [Concomitant]
  9. OMEPRAZOLE (OMEPRAZOLE) [Concomitant]

REACTIONS (2)
  - Transient ischaemic attack [None]
  - Deep vein thrombosis [None]
